FAERS Safety Report 11432574 (Version 1)
Quarter: 2015Q3

REPORT INFORMATION
  Report Type: Spontaneous
  Country: US (occurrence: US)
  Receive Date: 20150828
  Receipt Date: 20150828
  Transmission Date: 20151125
  Serious: No
  Sender: FDA-Public Use
  Company Number: US-PFIZER INC-2015284879

PATIENT
  Age: 48 Year
  Sex: Male
  Weight: 122 kg

DRUGS (1)
  1. PRISTIQ EXTENDED RELEASE [Suspect]
     Active Substance: DESVENLAFAXINE SUCCINATE
     Indication: ANXIETY
     Dosage: 100MG EXTENDED RELEASE TABLET DAILY, BY MOUTH
     Route: 048
     Dates: start: 2013

REACTIONS (2)
  - Drug ineffective [Not Recovered/Not Resolved]
  - Product solubility abnormal [Not Recovered/Not Resolved]

NARRATIVE: CASE EVENT DATE: 20150821
